FAERS Safety Report 15506454 (Version 33)
Quarter: 2022Q1

REPORT INFORMATION
  Report Type: Spontaneous
  Country: CA (occurrence: CA)
  Receive Date: 20181016
  Receipt Date: 20220201
  Transmission Date: 20220423
  Serious: Yes (Hospitalization, Other)
  Sender: FDA-Public Use
  Company Number: CA-CELLTRION INC.-2018CA021591

PATIENT

DRUGS (34)
  1. INFLECTRA [Suspect]
     Active Substance: INFLIXIMAB-DYYB
     Indication: Crohn^s disease
     Dosage: 530 MG (10MG/KG), EVERY 2, 6 THEN EVERY 8 WEEKS
     Route: 042
     Dates: start: 20180711, end: 20180824
  2. INFLECTRA [Suspect]
     Active Substance: INFLIXIMAB-DYYB
     Dosage: 500 MG, EVERY 2, 6 THEN EVERY 8 WEEKS
     Route: 042
     Dates: start: 20180719
  3. INFLECTRA [Suspect]
     Active Substance: INFLIXIMAB-DYYB
     Dosage: 500 MG, EVERY 2, 6 THEN EVERY 8 WEEKS
     Route: 042
     Dates: start: 20180719
  4. INFLECTRA [Suspect]
     Active Substance: INFLIXIMAB-DYYB
     Dosage: 10 MG/KG, EVERY 2, 6 THEN EVERY 8 WEEKS
     Route: 042
     Dates: start: 20180824
  5. INFLECTRA [Suspect]
     Active Substance: INFLIXIMAB-DYYB
     Dosage: REINDUCTION- 300 MG (5 MG/KG) WEEK 0, THEN 600 MG (10 MG/KG) WEEK 2, 6 THEN EVERY 8 WEEKS
     Route: 042
     Dates: start: 20190308
  6. INFLECTRA [Suspect]
     Active Substance: INFLIXIMAB-DYYB
     Dosage: 300 MG, (5 MG/KG), 0 THEN 600 MG (10MG PER KG), 2, 6 THEN EVERY 8 WEEKS
     Route: 042
     Dates: start: 20190322
  7. INFLECTRA [Suspect]
     Active Substance: INFLIXIMAB-DYYB
     Dosage: 300 MG, (5 MG/KG), 0 THEN 600 MG (10MG PER KG) 2, 6 THEN EVERY 8 WEEKS
     Route: 042
     Dates: start: 20190418
  8. INFLECTRA [Suspect]
     Active Substance: INFLIXIMAB-DYYB
     Dosage: 300 MG (5 MG/KG), 0 THEN 600 MG (10MG PER KG) 2, 6 THEN EVERY 8 WEEKS
     Route: 042
     Dates: start: 20190625
  9. INFLECTRA [Suspect]
     Active Substance: INFLIXIMAB-DYYB
     Dosage: 300 MG (5 MG/KG), 0 THEN 600 MG (10MG PER KG) 2, 6 THEN EVERY 8 WEEKS
     Route: 042
     Dates: start: 20200214
  10. INFLECTRA [Suspect]
     Active Substance: INFLIXIMAB-DYYB
     Dosage: 300 MG, (5 MG/KG), 0 THEN 600 MG (10MG PER KG) 2, 6 THEN EVERY 8 WEEKS
     Route: 042
     Dates: start: 20200504
  11. INFLECTRA [Suspect]
     Active Substance: INFLIXIMAB-DYYB
     Dosage: 300 MG (5 MG/KG) WEEK 0 THEN 600 MG (10MG PER KG) WEEK 2, 6 THEN EVERY 8 WEEKS
     Route: 042
     Dates: start: 20200717
  12. INFLECTRA [Suspect]
     Active Substance: INFLIXIMAB-DYYB
     Dosage: 300 MG (5 MG/KG) WEEK 0 THEN 600 MG (10MG PER KG) WEEK 2, 6 THEN EVERY 8 WEEKS
     Route: 042
     Dates: start: 20201006
  13. INFLECTRA [Suspect]
     Active Substance: INFLIXIMAB-DYYB
     Dosage: 300 MG (5 MG/KG) WEEK 0 THEN 600 MG (10MG PER KG) WEEK 2, 6 THEN EVERY 8 WEEKS
     Route: 042
     Dates: start: 20210309
  14. INFLECTRA [Suspect]
     Active Substance: INFLIXIMAB-DYYB
     Dosage: 300 MG (5 MG/KG) WEEK 0 THEN 600 MG (10MG PER KG) WEEK 2, 6 THEN EVERY 8 WEEKS
     Route: 042
     Dates: start: 20210323
  15. INFLECTRA [Suspect]
     Active Substance: INFLIXIMAB-DYYB
     Dosage: 300 MG (5 MG/KG) WEEK 0 THEN 600 MG (10MG PER KG) WEEK 2, 6 THEN EVERY 8 WEEKS
     Route: 042
     Dates: start: 20210323
  16. INFLECTRA [Suspect]
     Active Substance: INFLIXIMAB-DYYB
     Dosage: 300 MG (5 MG/KG) WEEK 0 THEN 600 MG (10MG PER KG) WEEK 2, 6 THEN EVERY 8 WEEKS
     Route: 042
     Dates: start: 20210522
  17. INFLECTRA [Suspect]
     Active Substance: INFLIXIMAB-DYYB
     Dosage: 300 MG (5 MG/KG) WEEK 0 THEN 600 MG (10MG PER KG) WEEK 2, 6 THEN EVERY 8 WEEKS
     Route: 042
     Dates: start: 20210717
  18. INFLECTRA [Suspect]
     Active Substance: INFLIXIMAB-DYYB
     Dosage: 300 MG (5 MG/KG) WEEK 0 THEN 600 MG (10MG PER KG) WEEK 2, 6 THEN EVERY 8 WEEKS
     Route: 042
     Dates: start: 20210911
  19. INFLECTRA [Suspect]
     Active Substance: INFLIXIMAB-DYYB
     Dosage: 300 MG (5 MG/KG) WEEK 0 THEN 600 MG (10MG PER KG) WEEK 2, 6 THEN EVERY 8 WEEKS
     Route: 042
     Dates: start: 20210911
  20. INFLECTRA [Suspect]
     Active Substance: INFLIXIMAB-DYYB
     Dosage: 300 MG (5 MG/KG) WEEK 0 THEN 600 MG (10MG PER KG) WEEK 2, 6 THEN EVERY 8 WEEKS
     Route: 042
     Dates: start: 20211106
  21. INFLECTRA [Suspect]
     Active Substance: INFLIXIMAB-DYYB
     Dosage: 300 MG (5 MG/KG) WEEK 0 THEN 600 MG (10MG PER KG) WEEK 2, 6 THEN EVERY 8 WEEKS
     Route: 042
     Dates: start: 20220122
  22. ADVIL [Concomitant]
     Active Substance: IBUPROFEN
     Dosage: 1 DF
     Route: 065
  23. CALCIUM CARBONATE [Concomitant]
     Active Substance: CALCIUM CARBONATE
     Dosage: 500 MG, 2X/DAY
  24. CIPRO [Concomitant]
     Active Substance: CIPROFLOXACIN HYDROCHLORIDE
     Dosage: UNK
  25. DALTEPARIN [Concomitant]
     Active Substance: DALTEPARIN
     Dosage: 5000 UNIT/0.2 ML SYRINGE
     Route: 065
  26. METRONIDAZOLE [Concomitant]
     Active Substance: METRONIDAZOLE
     Dosage: UNK
  27. PREDNISONE [Concomitant]
     Active Substance: PREDNISONE
     Dosage: 40 MG, 1X/DAY (TAPERING WEEKLY ON FRIDAYS)
     Route: 048
     Dates: start: 20180706
  28. PREDNISONE [Concomitant]
     Active Substance: PREDNISONE
     Dosage: 40 MG DAILY FOR 1 WEEK, THEN TAPPER BY 5MG WEEKLY UNTIL TAPERED OFF.
     Route: 048
     Dates: start: 20180706
  29. PANTOPRAZOLE [Concomitant]
     Active Substance: PANTOPRAZOLE
     Dosage: 40 MG, UNK
  30. SOLU-MEDROL [Concomitant]
     Active Substance: METHYLPREDNISOLONE SODIUM SUCCINATE
     Dosage: 20 MG, 3X/DAY
     Route: 042
  31. CHOLECALCIFEROL [Concomitant]
     Active Substance: CHOLECALCIFEROL
     Dosage: 1000 MG, DAILY
  32. ASCORBIC ACID\NIACINAMIDE\PYRIDOXINE\RIBOFLAVIN\THIAMINE [Concomitant]
     Active Substance: ASCORBIC ACID\NIACINAMIDE\PYRIDOXINE\RIBOFLAVIN\THIAMINE
     Dosage: UNK, ONCE DAILY
     Route: 048
  33. VITAMIN B COMPLEX [Concomitant]
     Active Substance: CYANOCOBALAMIN\DEXPANTHENOL\NIACINAMIDE\PYRIDOXINE HYDROCHLORIDE\RIBOFLAVIN 5^-PHOSPHATE SODIUM\THIA
     Dosage: UNK
  34. VITAMIN C [Concomitant]
     Active Substance: ASCORBIC ACID
     Dosage: UNK

REACTIONS (28)
  - Drug ineffective [Recovered/Resolved]
  - Condition aggravated [Recovering/Resolving]
  - Crohn^s disease [Not Recovered/Not Resolved]
  - Large intestinal stenosis [Not Recovered/Not Resolved]
  - Diarrhoea [Not Recovered/Not Resolved]
  - Abdominal pain [Not Recovered/Not Resolved]
  - Gastrointestinal disorder [Unknown]
  - Vomiting [Not Recovered/Not Resolved]
  - Gastrointestinal oedema [Unknown]
  - Diarrhoea haemorrhagic [Not Recovered/Not Resolved]
  - Off label use [Unknown]
  - Inappropriate schedule of product administration [Unknown]
  - Incorrect dose administered [Unknown]
  - Appetite disorder [Not Recovered/Not Resolved]
  - Abdominal distension [Unknown]
  - Arthropathy [Unknown]
  - Blood pressure fluctuation [Unknown]
  - Back disorder [Unknown]
  - Constipation [Not Recovered/Not Resolved]
  - Disease recurrence [Not Recovered/Not Resolved]
  - Dyspnoea [Unknown]
  - Gastrointestinal wall thickening [Unknown]
  - Heart rate irregular [Unknown]
  - Nausea [Unknown]
  - Rash [Not Recovered/Not Resolved]
  - Weight increased [Not Recovered/Not Resolved]
  - Weight decreased [Unknown]
  - Arthralgia [Unknown]

NARRATIVE: CASE EVENT DATE: 20180101
